FAERS Safety Report 5988690-3 (Version None)
Quarter: 2008Q4

REPORT INFORMATION
  Report Type: 
  Country: None (occurrence: None)
  Receive Date: 20081210
  Receipt Date: 20081201
  Transmission Date: 20090506
  Serious: Yes (Other)
  Sender: FDA-Public Use
  Company Number: PHBS2008GB06572

PATIENT
  Age: 6 Year
  Sex: Male

DRUGS (1)
  1. DESFERRIOXAMINE MESYLATE [Suspect]
     Dosage: UNK, UNK

REACTIONS (5)
  - BONE DISORDER [None]
  - BONE MARROW DISORDER [None]
  - CONDUCTIVE DEAFNESS [None]
  - OSSICLE DISORDER [None]
  - TYMPANIC MEMBRANE DISORDER [None]
